FAERS Safety Report 15792017 (Version 2)
Quarter: 2019Q1

REPORT INFORMATION
  Report Type: Spontaneous
  Country: BR (occurrence: BR)
  Receive Date: 20190106
  Receipt Date: 20190116
  Transmission Date: 20190417
  Serious: Yes (Hospitalization, Other)
  Sender: FDA-Public Use
  Company Number: BR-BEH-2018098035

PATIENT
  Age: 31 Year
  Sex: Male
  Weight: 60 kg

DRUGS (24)
  1. SANDOGLOBULINA [Suspect]
     Active Substance: HUMAN IMMUNOGLOBULIN G
     Dosage: 24 G, UNK
     Route: 042
     Dates: start: 20181109, end: 20181109
  2. AZITHROMYCIN ANHYDROUS. [Concomitant]
     Active Substance: AZITHROMYCIN ANHYDROUS
     Indication: DRY SKIN
     Dosage: UNK
     Route: 065
     Dates: start: 20181105
  3. AZITHROMYCIN ANHYDROUS. [Concomitant]
     Active Substance: AZITHROMYCIN ANHYDROUS
     Indication: SENSORY LOSS
  4. LEVOTHYROXINE. [Concomitant]
     Active Substance: LEVOTHYROXINE
     Indication: DRY SKIN
     Dosage: UNK
     Route: 065
     Dates: start: 20181105
  5. VITAMIN D3 [Concomitant]
     Active Substance: CHOLECALCIFEROL
     Indication: DRY SKIN
     Dosage: UNK
     Route: 065
     Dates: start: 20181105
  6. VITAMIN D3 [Concomitant]
     Active Substance: CHOLECALCIFEROL
     Indication: SENSORY LOSS
  7. AZITHROMYCIN ANHYDROUS. [Concomitant]
     Active Substance: AZITHROMYCIN ANHYDROUS
     Indication: PARAESTHESIA
  8. GLUCOSE [Concomitant]
     Active Substance: DEXTROSE
     Indication: SENSORY LOSS
  9. ENALAPRIL [Concomitant]
     Active Substance: ENALAPRIL
     Indication: DRY SKIN
     Dosage: UNK
     Route: 065
     Dates: start: 20181105
  10. LEVOTHYROXINE. [Concomitant]
     Active Substance: LEVOTHYROXINE
     Indication: PARAESTHESIA
  11. GLUCOSE [Concomitant]
     Active Substance: DEXTROSE
     Indication: PARAESTHESIA
  12. ENALAPRIL [Concomitant]
     Active Substance: ENALAPRIL
     Indication: PARAESTHESIA
  13. DIPHENHYDRAMINE. [Concomitant]
     Active Substance: DIPHENHYDRAMINE
     Indication: PROPHYLAXIS
     Dosage: UNK
     Route: 065
     Dates: start: 201811
  14. ACETAMINOPHEN. [Concomitant]
     Active Substance: ACETAMINOPHEN
     Indication: PROPHYLAXIS
     Dosage: UNK
     Route: 065
     Dates: start: 201811
  15. INSULIN [Concomitant]
     Active Substance: INSULIN NOS
     Indication: PRODUCT USED FOR UNKNOWN INDICATION
     Dosage: 1 IU, UNK, 3 TIMES BEFORE MEAL
     Route: 058
     Dates: start: 20181105
  16. ENALAPRIL [Concomitant]
     Active Substance: ENALAPRIL
     Indication: SENSORY LOSS
  17. VITAMIN D3 [Concomitant]
     Active Substance: CHOLECALCIFEROL
     Indication: PARAESTHESIA
  18. SANDOGLOBULINA [Suspect]
     Active Substance: HUMAN IMMUNOGLOBULIN G
     Indication: IMMUNODEFICIENCY COMMON VARIABLE
     Dosage: UNK
     Route: 065
     Dates: start: 2017, end: 2017
  19. HYDROCORTISONE. [Concomitant]
     Active Substance: HYDROCORTISONE
     Indication: PROPHYLAXIS
     Dosage: UNK
     Route: 065
     Dates: start: 201811
  20. NPH                                /00030513/ [Concomitant]
     Indication: PARAESTHESIA
  21. NPH                                /00030513/ [Concomitant]
     Indication: DRY SKIN
     Dosage: 6 IU, UNK, 3 TIMES BEFORE MEAL
     Route: 058
     Dates: start: 20181105
  22. NPH                                /00030513/ [Concomitant]
     Indication: SENSORY LOSS
  23. GLUCOSE [Concomitant]
     Active Substance: DEXTROSE
     Indication: DRY SKIN
     Dosage: UNK
     Route: 065
     Dates: start: 20181105
  24. LEVOTHYROXINE. [Concomitant]
     Active Substance: LEVOTHYROXINE
     Indication: SENSORY LOSS

REACTIONS (5)
  - Hyperhidrosis [Recovered/Resolved]
  - Hypotension [Recovered/Resolved]
  - Diabetes mellitus inadequate control [Unknown]
  - Unevaluable event [Unknown]
  - Pallor [Recovered/Resolved]

NARRATIVE: CASE EVENT DATE: 2017
